FAERS Safety Report 11700932 (Version 1)
Quarter: 2015Q4

REPORT INFORMATION
  Report Type: Spontaneous
  Country: US (occurrence: None)
  Receive Date: 20151104
  Receipt Date: 20151104
  Transmission Date: 20160304
  Serious: Yes (Hospitalization)
  Sender: FDA-Public Use
  Company Number: None

PATIENT
  Age: 60 Year
  Sex: Male
  Weight: 90.72 kg

DRUGS (1)
  1. HARVONI [Suspect]
     Active Substance: LEDIPASVIR\SOFOSBUVIR
     Indication: HEPATITIS C
     Dosage: 1 PILL  QD ORAL
     Route: 048

REACTIONS (4)
  - Cardioactive drug level increased [None]
  - Atrial fibrillation [None]
  - Therapy cessation [None]
  - Visual impairment [None]

NARRATIVE: CASE EVENT DATE: 20151101
